FAERS Safety Report 18445356 (Version 1)
Quarter: 2020Q4

REPORT INFORMATION
  Report Type: Spontaneous
  Country: US (occurrence: US)
  Receive Date: 20201030
  Receipt Date: 20201030
  Transmission Date: 20210114
  Serious: Yes (Hospitalization)
  Sender: FDA-Public Use
  Company Number: US-TORRENT-00010522

PATIENT
  Age: 62 Year
  Sex: Male

DRUGS (2)
  1. SERTRALINE [Concomitant]
     Active Substance: SERTRALINE HYDROCHLORIDE
     Indication: MAJOR DEPRESSION
     Dosage: UNKNOWN
  2. OLANZAPINE. [Suspect]
     Active Substance: OLANZAPINE
     Indication: PSYCHOTIC DISORDER
     Dosage: UNKNOWN

REACTIONS (6)
  - Syncope [Recovered/Resolved]
  - Endotracheal intubation [Recovered/Resolved]
  - Bundle branch block right [Unknown]
  - Thrombolysis [Unknown]
  - Pulmonary embolism [Recovered/Resolved]
  - Respiratory acidosis [Recovered/Resolved]
